FAERS Safety Report 8121272-6 (Version None)
Quarter: 2012Q1

REPORT INFORMATION
  Report Type: 
  Country: None (occurrence: None)
  Receive Date: 20120203
  Receipt Date: 20120118
  Transmission Date: 20120608
  Serious: Yes (Hospitalization, Other)
  Sender: FDA-Public Use
  Company Number: 2008002140

PATIENT
  Age: 58 Year
  Sex: Male
  Weight: 61 kg

DRUGS (9)
  1. PREDNISOLONE [Concomitant]
  2. BASEN (VOGLIBOSE) [Concomitant]
  3. OXYCONTIN [Concomitant]
  4. DIOVAN [Concomitant]
  5. LANSOPRAZOLE [Concomitant]
  6. LIPITOR [Concomitant]
  7. AMLODIPINE BESYLATE [Concomitant]
  8. GLUFAST (MITIGLINIDE CALCIUM) [Concomitant]
  9. ERLOTINIB HYDROCHLORIDE [Suspect]
     Indication: LUNG ADENOCARCINOMA
     Dosage: 150 MG, UID/QD, ORAL
     Route: 048
     Dates: start: 20080421, end: 20080423

REACTIONS (6)
  - LUNG ADENOCARCINOMA STAGE 0 [None]
  - INTERSTITIAL LUNG DISEASE [None]
  - RASH PUSTULAR [None]
  - NEOPLASM PROGRESSION [None]
  - ACUTE RESPIRATORY FAILURE [None]
  - BRONCHITIS [None]
